FAERS Safety Report 9473111 (Version 1)
Quarter: 2013Q3

REPORT INFORMATION
  Report Type: Spontaneous
  Country: US (occurrence: US)
  Receive Date: 20130823
  Receipt Date: 20130823
  Transmission Date: 20140515
  Serious: No
  Sender: FDA-Public Use
  Company Number: US-BRISTOL-MYERS SQUIBB COMPANY-17452921

PATIENT
  Age: 58 Year
  Sex: Female
  Weight: 108.84 kg

DRUGS (10)
  1. SPRYCEL [Suspect]
     Indication: CHRONIC MYELOID LEUKAEMIA
     Route: 048
     Dates: start: 20120510
  2. CARVEDILOL [Concomitant]
  3. SPIRONOLACTONE [Concomitant]
  4. EXCEDRIN MIGRAINE [Concomitant]
  5. ULTRAM [Concomitant]
  6. GABAPENTIN [Concomitant]
  7. ZOFRAN [Concomitant]
  8. OXYCODONE [Concomitant]
  9. PROCHLORPERAZINE [Concomitant]
  10. REGLAN [Concomitant]

REACTIONS (1)
  - Headache [Unknown]
